FAERS Safety Report 7138936-3 (Version None)
Quarter: 2010Q4

REPORT INFORMATION
  Report Type: 
  Country: None (occurrence: None)
  Receive Date: 20101206
  Receipt Date: 20101124
  Transmission Date: 20110411
  Serious: Yes (Hospitalization)
  Sender: FDA-Public Use
  Company Number: A0803361A

PATIENT
  Age: 58 Year
  Sex: Female
  Weight: 140.5 kg

DRUGS (1)
  1. AVANDAMET [Suspect]
     Dosage: 4MG BEFORE MEALS
     Route: 048
     Dates: start: 20000101, end: 20080301

REACTIONS (5)
  - CARDIAC PACEMAKER INSERTION [None]
  - FALL [None]
  - MOVEMENT DISORDER [None]
  - MYOCARDIAL INFARCTION [None]
  - UPPER LIMB FRACTURE [None]
